FAERS Safety Report 25674523 (Version 1)
Quarter: 2025Q3

REPORT INFORMATION
  Report Type: Report from Study
  Country: CO (occurrence: CO)
  Receive Date: 20250813
  Receipt Date: 20250813
  Transmission Date: 20251021
  Serious: Yes (Other)
  Sender: ELI LILLY AND COMPANY
  Company Number: CO-ELI_LILLY_AND_COMPANY-CO202508002192

PATIENT
  Age: 48 Year
  Sex: Female

DRUGS (1)
  1. VERZENIO [Suspect]
     Active Substance: ABEMACICLIB
     Indication: Breast cancer
     Dosage: 150 MG, BID
     Route: 048
     Dates: start: 20250409, end: 20250508

REACTIONS (4)
  - Hepatotoxicity [Recovered/Resolved]
  - Hypertransaminasaemia [Recovered/Resolved]
  - Hepatic pain [Recovered/Resolved]
  - Headache [Recovered/Resolved]
